FAERS Safety Report 25959292 (Version 1)
Quarter: 2025Q4

REPORT INFORMATION
  Report Type: Spontaneous
  Country: US (occurrence: US)
  Receive Date: 20251025
  Receipt Date: 20251025
  Transmission Date: 20260117
  Serious: Yes (Other)
  Sender: ALEXION PHARMACEUTICALS
  Company Number: US-AstraZeneca-CH-00977550AP

PATIENT
  Sex: Female

DRUGS (1)
  1. BUDESONIDE\FORMOTEROL [Suspect]
     Active Substance: BUDESONIDE\FORMOTEROL
     Indication: Asthma
     Dosage: 160 MICROGRAM
     Route: 065

REACTIONS (5)
  - Device delivery system issue [Unknown]
  - Pneumonia [Unknown]
  - Nasopharyngitis [Unknown]
  - Memory impairment [Unknown]
  - Wrong technique in device usage process [Unknown]
